FAERS Safety Report 4667928-9 (Version None)
Quarter: 2005Q2

REPORT INFORMATION
  Report Type: 
  Country: None (occurrence: None)
  Receive Date: 20050520
  Receipt Date: 20050510
  Transmission Date: 20051028
  Serious: Yes (Other)
  Sender: FDA-Public Use
  Company Number: GB-JNJFOC-20050503992

PATIENT
  Age: 52 Year
  Sex: Male
  Weight: 81 kg

DRUGS (2)
  1. IBUPROFEN [Suspect]
     Route: 049
  2. PARACETAMOL [Concomitant]
     Route: 049

REACTIONS (1)
  - JEJUNAL ULCER PERFORATION [None]
